FAERS Safety Report 24025145 (Version 3)
Quarter: 2024Q2

REPORT INFORMATION
  Report Type: Report from Study
  Country: US (occurrence: US)
  Receive Date: 20240628
  Receipt Date: 20240628
  Transmission Date: 20240716
  Serious: No
  Sender: FDA-Public Use
  Company Number: US-ROCHE-3391179

PATIENT
  Age: 61 Year
  Sex: Female

DRUGS (4)
  1. ALECENSA [Suspect]
     Active Substance: ALECTINIB HYDROCHLORIDE
     Indication: Uterine cancer
     Dosage: TAKE 4 CAPSULE(S) BY MOUTH TWICE A DAY WITH FOOD
     Route: 048
  2. VITAMIN C [Concomitant]
     Active Substance: ASCORBIC ACID
  3. DEXAMETHASONE [Concomitant]
     Active Substance: DEXAMETHASONE
  4. WHEATGRASS [Concomitant]

REACTIONS (2)
  - Off label use [Unknown]
  - No adverse event [Unknown]
